FAERS Safety Report 9756284 (Version 1)
Quarter: 2013Q4

REPORT INFORMATION
  Report Type: Spontaneous
  Country: US (occurrence: US)
  Receive Date: 20131213
  Receipt Date: 20131213
  Transmission Date: 20140711
  Serious: No
  Sender: FDA-Public Use
  Company Number: US-GLAXOSMITHKLINE-A1037461A

PATIENT
  Sex: Female

DRUGS (2)
  1. NICODERM CQ 14MG [Suspect]
     Indication: EX-TOBACCO USER
     Dates: start: 201307, end: 201308
  2. NICORETTE CINNAMON SURGE OTC 2MG [Suspect]
     Indication: EX-TOBACCO USER
     Dates: start: 201304

REACTIONS (13)
  - Application site rash [Recovered/Resolved]
  - Application site urticaria [Recovered/Resolved]
  - Application site pruritus [Recovered/Resolved]
  - Application site reaction [Recovered/Resolved]
  - Application site pain [Recovered/Resolved]
  - Application site inflammation [Recovered/Resolved]
  - Poor quality sleep [Recovered/Resolved]
  - Drug ineffective [Unknown]
  - Nausea [Recovered/Resolved]
  - Application site pain [Recovered/Resolved]
  - Application site warmth [Recovered/Resolved]
  - Application site discolouration [Recovered/Resolved]
  - Application site erythema [Recovered/Resolved]
